FAERS Safety Report 10233207 (Version 1)
Quarter: 2014Q2

REPORT INFORMATION
  Report Type: Spontaneous
  Country: US (occurrence: None)
  Receive Date: 20140506
  Receipt Date: 20140506
  Transmission Date: 20141212
  Serious: Yes (Hospitalization)
  Sender: FDA-Public Use
  Company Number: 1237908

PATIENT
  Age: 56 Year
  Sex: Female

DRUGS (3)
  1. AVASTIN (BEVACIZUMAB) [Suspect]
     Indication: NON-SMALL CELL LUNG CANCER METASTATIC
     Route: 042
  2. TAXOL (PLACLITAXEL) [Concomitant]
  3. CARBOPLATIN (CARBOPLATIN) [Concomitant]

REACTIONS (1)
  - Myocardial infarction [None]
